FAERS Safety Report 7520735-1 (Version None)
Quarter: 2011Q2

REPORT INFORMATION
  Report Type: 
  Country: None (occurrence: None)
  Receive Date: 20110603
  Receipt Date: 20100820
  Transmission Date: 20111010
  Serious: Yes (Hospitalization, Other)
  Sender: FDA-Public Use
  Company Number: US-BAYER-200942654NA

PATIENT
  Age: 21 Year
  Sex: Female
  Weight: 86 kg

DRUGS (4)
  1. ZYRTEC [Concomitant]
     Dosage: PHARMACY RECORDS: FILLED ON FEB-2003 AND APR-2003
     Route: 065
  2. YASMIN [Suspect]
     Indication: ORAL CONTRACEPTION
     Route: 048
     Dates: start: 20030706, end: 20080306
  3. LINDANE [Concomitant]
     Dosage: 1 %, PHARMACY RECORDS: FILLED ON 28-APR-2004
     Route: 065
  4. AMOXICILLIN [Concomitant]
     Dosage: PHARMACY RECORDS: FILLED IN FEB-2003
     Route: 065

REACTIONS (8)
  - NAUSEA [None]
  - HAEMATEMESIS [None]
  - CHOLELITHIASIS [None]
  - FEELING HOT [None]
  - ABDOMINAL PAIN [None]
  - CHOLECYSTITIS ACUTE [None]
  - ABDOMINAL PAIN UPPER [None]
  - VOMITING [None]
